FAERS Safety Report 6316075-9 (Version None)
Quarter: 2009Q3

REPORT INFORMATION
  Report Type: 
  Country: None (occurrence: None)
  Receive Date: 20090820
  Receipt Date: 20090807
  Transmission Date: 20100115
  Serious: Yes (Other)
  Sender: FDA-Public Use
  Company Number: PHHY2009DE33483

PATIENT
  Sex: Female
  Weight: 62 kg

DRUGS (5)
  1. CGS 20267 T30748+ [Suspect]
     Indication: BREAST CANCER
     Dosage: 2.5 MG DAILY
     Route: 048
     Dates: start: 20081209, end: 20090718
  2. ATENOLOL [Concomitant]
     Dosage: 1-0-0
     Dates: start: 19880101
  3. RAMIPRIL [Concomitant]
     Dosage: UNK
     Dates: start: 19880101
  4. ISOSORBIDE [Concomitant]
     Dosage: 0-1-0
     Dates: start: 19950101
  5. LAXANTE [Concomitant]
     Indication: EYE DISORDER
     Dosage: UNK
     Route: 048
     Dates: start: 20060101

REACTIONS (2)
  - ARTHROPATHY [None]
  - VISUAL IMPAIRMENT [None]
